FAERS Safety Report 10333719 (Version 4)
Quarter: 2015Q1

REPORT INFORMATION
  Report Type: Spontaneous
  Country: US (occurrence: US)
  Receive Date: 20140723
  Receipt Date: 20150309
  Transmission Date: 20150720
  Serious: Yes (Life-Threatening, Hospitalization, Other)
  Sender: FDA-Public Use
  Company Number: US-AMGEN INC.-USASP2014054833

PATIENT
  Age: 58 Year
  Sex: Male

DRUGS (2)
  1. METAMFETAMINE [Concomitant]
     Active Substance: METHAMPHETAMINE
     Dosage: UNK
  2. ENBREL [Suspect]
     Active Substance: ETANERCEPT
     Indication: PSORIASIS
     Dosage: 50 MG, QWK
     Route: 065
     Dates: start: 201307

REACTIONS (13)
  - Intestinal perforation [Recovered/Resolved]
  - Acute kidney injury [Recovered/Resolved]
  - Diverticulitis [Recovered/Resolved]
  - Alcohol withdrawal syndrome [Recovered/Resolved]
  - Nail disorder [Recovered/Resolved]
  - Psoriasis [Recovered/Resolved]
  - Pain in extremity [Recovered/Resolved]
  - Contusion [Recovered/Resolved]
  - Dementia [Recovered/Resolved]
  - Epistaxis [Recovered/Resolved]
  - Nail pitting [Recovered/Resolved]
  - Hypoaesthesia [Recovered/Resolved]
  - Nasopharyngitis [Recovered/Resolved]

NARRATIVE: CASE EVENT DATE: 20130701
